FAERS Safety Report 16364633 (Version 1)
Quarter: 2019Q2

REPORT INFORMATION
  Report Type: Spontaneous
  Country: DK (occurrence: DK)
  Receive Date: 20190529
  Receipt Date: 20190529
  Transmission Date: 20190711
  Serious: Yes (Hospitalization)
  Sender: FDA-Public Use
  Company Number: DK-B.I. PHARMACEUTICALS,INC./RIDGEFIELD-2019-12-001704

PATIENT
  Age: 52 Year
  Sex: Female

DRUGS (4)
  1. METFORMIN ACTAVIS [Concomitant]
     Active Substance: METFORMIN HYDROCHLORIDE
     Indication: DIABETES MELLITUS
     Dosage: FILM-COATED TABLETS
     Route: 048
     Dates: start: 20140514
  2. JARDIANCE [Suspect]
     Active Substance: EMPAGLIFLOZIN
     Indication: DIABETES MELLITUS
     Dosage: FILM-COATED TABLETS 10 MG
     Route: 048
     Dates: start: 20190502, end: 20190512
  3. TRESIBA [Concomitant]
     Active Substance: INSULIN DEGLUDEC
     Indication: DIABETES MELLITUS
     Dosage: STYRKE: 100 E/ML,  SOLUTION FOR INJECTION IN PRE-FILLED PEN
     Route: 058
     Dates: start: 20170830
  4. OZEMPIC [Concomitant]
     Active Substance: SEMAGLUTIDE
     Indication: DIABETES MELLITUS
     Dosage: STRENGTH: 0.5 MG. DOSE: 1 DOSE WEEKLY,  SOLUTION FOR INJECTION IN PRE-FILLED PEN
     Route: 058
     Dates: start: 20181220

REACTIONS (1)
  - Diabetic ketoacidosis [Recovered/Resolved]

NARRATIVE: CASE EVENT DATE: 20190512
